FAERS Safety Report 22988253 (Version 6)
Quarter: 2023Q4

REPORT INFORMATION
  Report Type: Report from Study
  Country: US (occurrence: US)
  Receive Date: 20230926
  Receipt Date: 20231218
  Transmission Date: 20240110
  Serious: Yes (Other)
  Sender: FDA-Public Use
  Company Number: US-002147023-NVSC2023US205820

PATIENT
  Sex: Female

DRUGS (1)
  1. KISQALI [Suspect]
     Active Substance: RIBOCICLIB
     Indication: Product used for unknown indication
     Dosage: UNK
     Route: 065

REACTIONS (13)
  - Pneumonia [Unknown]
  - Neoplasm malignant [Unknown]
  - Sepsis [Unknown]
  - Flushing [Unknown]
  - Feeling cold [Unknown]
  - Breast discomfort [Unknown]
  - Breast pain [Unknown]
  - Muscular weakness [Unknown]
  - Headache [Unknown]
  - Gait disturbance [Unknown]
  - Emotional distress [Unknown]
  - White blood cell count abnormal [Unknown]
  - Platelet count increased [Unknown]
